FAERS Safety Report 5723799-0 (Version None)
Quarter: 2008Q2

REPORT INFORMATION
  Report Type: 
  Country: None (occurrence: None)
  Receive Date: 20080429
  Receipt Date: 20080429
  Transmission Date: 20081010
  Serious: Yes (Hospitalization)
  Sender: FDA-Public Use
  Company Number: None

PATIENT
  Age: 65 Month
  Sex: Female

DRUGS (2)
  1. UNASYN [Suspect]
     Indication: APPENDICITIS
     Dosage: 1.5 G  Q6 IV
     Route: 042
     Dates: start: 20060707, end: 20060709
  2. LISINOPRIL [Suspect]
     Indication: HYPERTENSION
     Dosage: 10 MG DAILY PO
     Route: 048
     Dates: start: 20060707, end: 20060709

REACTIONS (3)
  - APPENDICITIS PERFORATED [None]
  - JAUNDICE [None]
  - LIVER FUNCTION TEST ABNORMAL [None]
